FAERS Safety Report 14777356 (Version 1)
Quarter: 2018Q2

REPORT INFORMATION
  Report Type: Spontaneous
  Country: GB (occurrence: GB)
  Receive Date: 20180419
  Receipt Date: 20180419
  Transmission Date: 20180711
  Serious: Yes (Death, Hospitalization)
  Sender: FDA-Public Use
  Company Number: GB-TEVA-2018-GB-882222

PATIENT
  Age: 78 Year

DRUGS (17)
  1. FUROSEMIDE. [Concomitant]
     Active Substance: FUROSEMIDE
     Dosage: 120 MILLIGRAM DAILY; 80MG OM 40MG LUNCH
     Route: 048
  2. QVAR EASI-BREATHE [Concomitant]
     Active Substance: BECLOMETHASONE DIPROPIONATE
     Dosage: 4 DOSAGE FORMS DAILY; 100MICROGRAMS/DOSE
     Route: 055
  3. HYPROMELLOSE [Concomitant]
     Active Substance: HYPROMELLOSES
     Dosage: BOTH EYES
     Route: 050
  4. SIMVASTATIN. [Suspect]
     Active Substance: SIMVASTATIN
     Dosage: 40 MILLIGRAM DAILY; NIGHT
     Route: 048
  5. APIXABAN [Suspect]
     Active Substance: APIXABAN
     Indication: DEEP VEIN THROMBOSIS
     Dosage: 10 MILLIGRAM DAILY;
     Route: 048
     Dates: start: 20170512
  6. ALENDRONIC ACID [Concomitant]
     Active Substance: ALENDRONIC ACID
     Route: 048
  7. PREGABALIN. [Concomitant]
     Active Substance: PREGABALIN
     Dosage: 150 MILLIGRAM DAILY;
     Route: 048
  8. ADCAL-D3 [Concomitant]
     Active Substance: CALCIUM CARBONATE\CHOLECALCIFEROL
     Dosage: 3 GRAM DAILY;
     Route: 048
  9. PARACETAMOL [Suspect]
     Active Substance: ACETAMINOPHEN
     Dosage: 4 TIMES A DAY
     Route: 048
  10. AMOXICILLIN. [Suspect]
     Active Substance: AMOXICILLIN
     Indication: PNEUMONIA
     Dosage: 1500 MILLIGRAM DAILY;
     Route: 048
     Dates: start: 20170530, end: 20170605
  11. ACETYLSALICYLIC ACID [Concomitant]
     Active Substance: ASPIRIN
     Dosage: 75 MILLIGRAM DAILY;
     Route: 048
  12. CLARITHROMYCIN. [Suspect]
     Active Substance: CLARITHROMYCIN
     Indication: PNEUMONIA
     Dosage: 1000 MILLIGRAM DAILY;
     Route: 048
     Dates: start: 20170530, end: 20170602
  13. SALBUTAMOL [Concomitant]
     Active Substance: ALBUTEROL
     Dosage: 100MICROGRAMS/DOSE
     Route: 055
  14. BENZYDAMINE [Concomitant]
     Active Substance: BENZYDAMINE
     Dosage: 4-8 PUFFS, OROMUCOSAL SPRAY
     Route: 050
  15. LACTULOSE. [Concomitant]
     Active Substance: LACTULOSE
     Dosage: 30 ML DAILY;
     Route: 048
  16. OMEPRAZOLE. [Concomitant]
     Active Substance: OMEPRAZOLE
     Dosage: 20 MILLIGRAM DAILY;
     Route: 048
  17. SERTRALINE [Concomitant]
     Active Substance: SERTRALINE HYDROCHLORIDE
     Dosage: 25 MILLIGRAM DAILY; MORNING
     Route: 048

REACTIONS (6)
  - Liver function test abnormal [Not Recovered/Not Resolved]
  - Myocardial infarction [Fatal]
  - Drug-induced liver injury [Not Recovered/Not Resolved]
  - Confusional state [Not Recovered/Not Resolved]
  - Sepsis [Not Recovered/Not Resolved]
  - Bleeding time prolonged [Not Recovered/Not Resolved]

NARRATIVE: CASE EVENT DATE: 20170613
